FAERS Safety Report 6141659-0 (Version None)
Quarter: 2009Q1

REPORT INFORMATION
  Report Type: 
  Country: None (occurrence: None)
  Receive Date: 20090331
  Receipt Date: 20090317
  Transmission Date: 20090719
  Serious: Yes (Hospitalization)
  Sender: FDA-Public Use
  Company Number: 1000005501

PATIENT
  Age: 36 Year
  Sex: Female

DRUGS (5)
  1. ESCITALOPRAM [Suspect]
     Dosage: 10 MG (10 MG, 1 IN 1 D), ORAL
     Route: 048
     Dates: start: 20090118, end: 20090124
  2. ESCITALOPRAM [Suspect]
     Dosage: 5 MG (5 MG, 1 IN 1 D), ORAL
     Route: 048
     Dates: start: 20090110, end: 20090117
  3. CLONIDINE HCL [Concomitant]
  4. CELECTOL [Concomitant]
  5. STRESAM [Suspect]
     Dosage: 1 TO 4 DR DAILY (AS
     Dates: start: 20090110, end: 20090124

REACTIONS (1)
  - LEUKOCYTOCLASTIC VASCULITIS [None]
